FAERS Safety Report 25412201 (Version 1)
Quarter: 2025Q2

REPORT INFORMATION
  Report Type: Spontaneous
  Country: US (occurrence: US)
  Receive Date: 20250609
  Receipt Date: 20250609
  Transmission Date: 20250716
  Serious: No
  Sender: BAYER HEALTHCARE LLC
  Company Number: US-BAYER-2025A073119

PATIENT
  Age: 81 Year
  Sex: Female

DRUGS (2)
  1. MIRALAX [Suspect]
     Active Substance: POLYETHYLENE GLYCOL 3350
     Indication: Abdominal distension
     Dosage: OM
     Route: 048
     Dates: start: 202503, end: 20250528
  2. MIRALAX [Suspect]
     Active Substance: POLYETHYLENE GLYCOL 3350
     Indication: Haemorrhoids

REACTIONS (3)
  - Diarrhoea [Unknown]
  - Product prescribing issue [Unknown]
  - Expired product administered [Unknown]
